FAERS Safety Report 11434609 (Version 1)
Quarter: 2015Q3

REPORT INFORMATION
  Report Type: Spontaneous
  Country: DE (occurrence: DE)
  Receive Date: 20150831
  Receipt Date: 20150831
  Transmission Date: 20151125
  Serious: Yes (Hospitalization)
  Sender: FDA-Public Use
  Company Number: PHHY2015DE069036

PATIENT
  Age: 76 Year
  Sex: Female

DRUGS (3)
  1. AMIODARONE [Interacting]
     Active Substance: AMIODARONE
     Indication: PRODUCT USED FOR UNKNOWN INDICATION
     Route: 042
  2. DIGOXIN. [Suspect]
     Active Substance: DIGOXIN
     Indication: CARDIAC FAILURE CONGESTIVE
     Dosage: 0.5 MG, UNK
     Route: 042
  3. DRONEDARONE [Interacting]
     Active Substance: DRONEDARONE
     Indication: ATRIAL TACHYCARDIA
     Dosage: 400 MG, BID
     Route: 065

REACTIONS (2)
  - Torsade de pointes [Unknown]
  - Drug interaction [Unknown]
